FAERS Safety Report 10476698 (Version 1)
Quarter: 2014Q3

REPORT INFORMATION
  Report Type: Spontaneous
  Country: US (occurrence: US)
  Receive Date: 20140925
  Receipt Date: 20140925
  Transmission Date: 20150326
  Serious: Yes (Hospitalization)
  Sender: FDA-Public Use
  Company Number: US-CELGENE-163-10004-14092705

PATIENT
  Age: 53 Year
  Sex: Female
  Weight: 93.98 kg

DRUGS (1)
  1. OTEZLA [Suspect]
     Active Substance: APREMILAST
     Indication: PSORIATIC ARTHROPATHY
     Dosage: 60 MILLIGRAM
     Route: 048
     Dates: start: 20140628, end: 20140829

REACTIONS (1)
  - Abscess bacterial [Not Recovered/Not Resolved]

NARRATIVE: CASE EVENT DATE: 20140829
